FAERS Safety Report 7170945-0 (Version None)
Quarter: 2010Q4

REPORT INFORMATION
  Report Type: 
  Country: None (occurrence: None)
  Receive Date: 20101217
  Receipt Date: 20101210
  Transmission Date: 20110411
  Serious: Yes (Hospitalization)
  Sender: FDA-Public Use
  Company Number: US-BRISTOL-MYERS SQUIBB COMPANY-15436488

PATIENT
  Age: 7 Decade
  Sex: Female

DRUGS (1)
  1. ONGLYZA [Suspect]
     Dosage: 5 MG TAB SPLIT TO 2.5 MG DOSE

REACTIONS (1)
  - PANCREATITIS [None]
